FAERS Safety Report 15134317 (Version 1)
Quarter: 2018Q3

REPORT INFORMATION
  Report Type: Spontaneous
  Country: US (occurrence: US)
  Receive Date: 20180712
  Receipt Date: 20180712
  Transmission Date: 20181010
  Serious: No
  Sender: FDA-Public Use
  Company Number: US-GALDERMA-US18009476

PATIENT
  Sex: Female

DRUGS (3)
  1. THE BODY SHOP TEA TREE FACE WASH [Concomitant]
  2. JERGENS COLD CREAM [Concomitant]
  3. DIFFERIN GEL [Suspect]
     Active Substance: ADAPALENE
     Indication: ACNE
     Dosage: 0.1%
     Route: 061

REACTIONS (1)
  - Acne [Unknown]
